FAERS Safety Report 8952499 (Version 4)
Quarter: 2013Q2

REPORT INFORMATION
  Report Type: Report from Study
  Country: BR (occurrence: BR)
  Receive Date: 20121205
  Receipt Date: 20130418
  Transmission Date: 20140414
  Serious: Yes (Other)
  Sender: FDA-Public Use
  Company Number: PHHY2012BR110789

PATIENT
  Sex: Female
  Weight: 53 kg

DRUGS (6)
  1. GILENYA [Suspect]
     Indication: MULTIPLE SCLEROSIS
     Dosage: 0.5 MG, QD
     Route: 048
     Dates: start: 201203
  2. NARAMIG [Concomitant]
  3. TORSILAX [Concomitant]
     Indication: HEADACHE
  4. ORAL CONTRACEPTIVE NOS [Concomitant]
  5. DICLIN [Concomitant]
  6. SANDOMIGRAN [Concomitant]
     Indication: HEADACHE

REACTIONS (8)
  - Central nervous system lesion [Unknown]
  - Rash macular [Not Recovered/Not Resolved]
  - Sensation of heaviness [Recovering/Resolving]
  - Nervousness [Recovering/Resolving]
  - Nausea [Not Recovered/Not Resolved]
  - Headache [Not Recovered/Not Resolved]
  - Depressed mood [Unknown]
  - Drug ineffective [Unknown]
